FAERS Safety Report 15232260 (Version 4)
Quarter: 2020Q2

REPORT INFORMATION
  Report Type: Report from Study
  Country: DE (occurrence: DE)
  Receive Date: 20180802
  Receipt Date: 20200415
  Transmission Date: 20200713
  Serious: Yes (Other)
  Sender: FDA-Public Use
  Company Number: DE-BRISTOL-MYERS SQUIBB COMPANY-BMS-2018-069897

PATIENT
  Age: 63 Year
  Sex: Male

DRUGS (4)
  1. DASATINIB. [Suspect]
     Active Substance: DASATINIB
     Indication: CHRONIC MYELOID LEUKAEMIA
     Dosage: 500 MILLIGRAM, QD
     Route: 065
     Dates: start: 20180204, end: 20180328
  2. NILOTINIB [Suspect]
     Active Substance: NILOTINIB
     Indication: CHRONIC MYELOID LEUKAEMIA
     Dosage: 300 MILLIGRAM, BID
     Route: 065
     Dates: start: 20170317, end: 20180203
  3. HYDROXYUREA. [Suspect]
     Active Substance: HYDROXYUREA
     Indication: PRODUCT USED FOR UNKNOWN INDICATION
     Dosage: 500 MG, TID
     Route: 065
     Dates: start: 20170217, end: 20170316
  4. HYDROXYUREA. [Suspect]
     Active Substance: HYDROXYUREA
     Indication: CHRONIC MYELOID LEUKAEMIA
     Dosage: 500 MILLIGRAM, BID
     Route: 065
     Dates: start: 20170208, end: 20170216

REACTIONS (3)
  - Prescribed overdose [Unknown]
  - VIth nerve paralysis [Recovered/Resolved]
  - Cerebral microangiopathy [Recovered/Resolved]

NARRATIVE: CASE EVENT DATE: 20171223
